FAERS Safety Report 23667849 (Version 1)
Quarter: 2024Q1

REPORT INFORMATION
  Report Type: Spontaneous
  Country: FR (occurrence: None)
  Receive Date: 20240325
  Receipt Date: 20240325
  Transmission Date: 20240409
  Serious: Yes (Hospitalization)
  Sender: FDA-Public Use
  Company Number: 2024A070129

PATIENT
  Age: 62 Year
  Sex: Female

DRUGS (1)
  1. TAGRISSO [Suspect]
     Active Substance: OSIMERTINIB
     Indication: Lung cancer metastatic
     Route: 048
     Dates: start: 20231215, end: 20240229

REACTIONS (5)
  - Nausea [Recovering/Resolving]
  - Hepatic cytolysis [Recovering/Resolving]
  - Dry eye [Recovering/Resolving]
  - Pain [Recovering/Resolving]
  - Mouth ulceration [Recovering/Resolving]

NARRATIVE: CASE EVENT DATE: 20240201
